FAERS Safety Report 17179859 (Version 1)
Quarter: 2019Q4

REPORT INFORMATION
  Report Type: Spontaneous
  Country: FR (occurrence: FR)
  Receive Date: 20191220
  Receipt Date: 20191220
  Transmission Date: 20200122
  Serious: Yes (Hospitalization, Other)
  Sender: FDA-Public Use
  Company Number: FR-BRISTOL-MYERS SQUIBB COMPANY-BMS-2019-120297

PATIENT
  Age: 94 Year
  Sex: Female
  Weight: 40 kg

DRUGS (1)
  1. ELIQUIS [Suspect]
     Active Substance: APIXABAN
     Indication: PULMONARY EMBOLISM
     Dosage: 2 DOSAGE FORM, DAILY
     Route: 048
     Dates: start: 20191029, end: 20191102

REACTIONS (4)
  - Epistaxis [Recovered/Resolved]
  - Blood loss anaemia [Recovering/Resolving]
  - Hypotension [Recovered/Resolved]
  - Gingival bleeding [Recovered/Resolved]

NARRATIVE: CASE EVENT DATE: 20191030
